FAERS Safety Report 10587821 (Version 14)
Quarter: 2015Q2

REPORT INFORMATION
  Report Type: Spontaneous
  Country: IL (occurrence: IL)
  Receive Date: 20141117
  Receipt Date: 20150605
  Transmission Date: 20150821
  Serious: Yes (Hospitalization, Other)
  Sender: FDA-Public Use
  Company Number: IL-PFIZER INC-2014312057

PATIENT
  Age: 60 Year
  Sex: Male

DRUGS (4)
  1. SUTENT [Suspect]
     Active Substance: SUNITINIB MALATE
     Indication: RENAL CELL CARCINOMA
     Dosage: 50 MG, 1X/DAY, CYCLIC
     Route: 048
     Dates: start: 20141030
  2. ASPIRIN. [Concomitant]
     Active Substance: ASPIRIN
     Route: 048
  3. CARDILOC [Concomitant]
     Active Substance: BISOPROLOL FUMARATE
     Route: 048
  4. CRESTOR [Concomitant]
     Active Substance: ROSUVASTATIN CALCIUM
     Indication: BLOOD CHOLESTEROL

REACTIONS (29)
  - Haematemesis [Not Recovered/Not Resolved]
  - Asthenia [Recovering/Resolving]
  - Oropharyngeal pain [Not Recovered/Not Resolved]
  - Weight decreased [Not Recovered/Not Resolved]
  - Nausea [Recovered/Resolved]
  - Diarrhoea [Unknown]
  - Skin papilloma [Unknown]
  - Fatigue [Not Recovered/Not Resolved]
  - Vomiting [Not Recovered/Not Resolved]
  - White blood cell count decreased [Unknown]
  - Haematochezia [Recovered/Resolved]
  - Ageusia [Not Recovered/Not Resolved]
  - Blood calcium decreased [Recovering/Resolving]
  - Blood count abnormal [Recovering/Resolving]
  - Dysphagia [Recovering/Resolving]
  - Dry skin [Recovering/Resolving]
  - Odynophagia [Unknown]
  - Dyspepsia [Not Recovered/Not Resolved]
  - Cough [Recovering/Resolving]
  - Blood phosphorus decreased [Unknown]
  - Pain in extremity [Unknown]
  - Loss of consciousness [Recovered/Resolved]
  - Malaise [Recovering/Resolving]
  - Hyperaesthesia [Recovering/Resolving]
  - Palmar-plantar erythrodysaesthesia syndrome [Unknown]
  - Epistaxis [Recovered/Resolved]
  - Decreased appetite [Not Recovered/Not Resolved]
  - Feeling cold [Not Recovered/Not Resolved]
  - Hypophagia [Not Recovered/Not Resolved]

NARRATIVE: CASE EVENT DATE: 2014
